FAERS Safety Report 13042423 (Version 2)
Quarter: 2016Q4

REPORT INFORMATION
  Report Type: Spontaneous
  Country: US (occurrence: US)
  Receive Date: 20161219
  Receipt Date: 20161227
  Transmission Date: 20170207
  Serious: Yes (Other)
  Sender: FDA-Public Use
  Company Number: US-ELI_LILLY_AND_COMPANY-US201612005505

PATIENT
  Age: 66 Year
  Sex: Female

DRUGS (8)
  1. HUMAN INSULIN [Suspect]
     Active Substance: INSULIN HUMAN
     Dosage: 38 U, QD AT NIGHT
     Route: 065
  2. HUMAN INSULIN [Suspect]
     Active Substance: INSULIN HUMAN
     Indication: TYPE 2 DIABETES MELLITUS
     Dosage: 64 U, EACH MORNING
     Route: 065
     Dates: start: 201604
  3. HUMAN INSULIN [Suspect]
     Active Substance: INSULIN HUMAN
     Dosage: 64 U, EACH MORNING
     Route: 065
  4. HUMAN INSULIN [Suspect]
     Active Substance: INSULIN HUMAN
     Dosage: 38 U, QD AT NIGHT
     Route: 065
  5. HUMAN INSULIN [Suspect]
     Active Substance: INSULIN HUMAN
     Dosage: 38 U, QD AT NIGHT
     Route: 065
  6. HUMAN INSULIN [Suspect]
     Active Substance: INSULIN HUMAN
     Dosage: 64 U, EACH MORNING
     Route: 065
  7. HUMAN INSULIN [Suspect]
     Active Substance: INSULIN HUMAN
     Dosage: 38 U, QD AT NIGHT
     Route: 065
     Dates: start: 201604
  8. HUMAN INSULIN [Suspect]
     Active Substance: INSULIN HUMAN
     Dosage: 64 U, EACH MORNING
     Route: 065

REACTIONS (5)
  - Injection site pain [Unknown]
  - Musculoskeletal disorder [Unknown]
  - Cataract [Unknown]
  - Musculoskeletal pain [Unknown]
  - Memory impairment [Unknown]

NARRATIVE: CASE EVENT DATE: 201611
